FAERS Safety Report 23738431 (Version 3)
Quarter: 2024Q2

REPORT INFORMATION
  Report Type: Spontaneous
  Country: DE (occurrence: DE)
  Receive Date: 20240412
  Receipt Date: 20240611
  Transmission Date: 20240716
  Serious: Yes (Other)
  Sender: FDA-Public Use
  Company Number: DE-LUPIN HEALTHCARE (UK) LIMITED-2024-02635

PATIENT
  Age: 32 Year
  Sex: Male

DRUGS (14)
  1. METHYLPHENIDATE [Suspect]
     Active Substance: METHYLPHENIDATE
     Indication: Attention deficit hyperactivity disorder
     Dosage: UNK
     Route: 065
  2. SUMATRIPTAN [Suspect]
     Active Substance: SUMATRIPTAN
     Indication: Cluster headache
     Dosage: 6 MG, INJECTION
     Route: 058
  3. NARATRIPTAN [Suspect]
     Active Substance: NARATRIPTAN HYDROCHLORIDE
     Indication: Cluster headache
     Dosage: 2.5 MG, Q2D (THEN DISCONTINUED)
     Route: 065
  4. NARATRIPTAN [Suspect]
     Active Substance: NARATRIPTAN HYDROCHLORIDE
     Dosage: 5 MILLIGRAM, QD (2.5 MG, BID)
     Route: 065
  5. BUPROPION [Concomitant]
     Active Substance: BUPROPION
     Indication: Antidepressant therapy
     Dosage: UNK
     Route: 065
  6. BUPROPION [Concomitant]
     Active Substance: BUPROPION
     Indication: Attention deficit hyperactivity disorder
  7. CORTISONE [Concomitant]
     Active Substance: CORTISONE
     Indication: Cluster headache
     Dosage: UNK
     Route: 065
  8. VERAPAMIL [Concomitant]
     Active Substance: VERAPAMIL HYDROCHLORIDE
     Indication: Cluster headache
     Dosage: 240 MILLIGRAM, QD, 80 MG, TID
     Route: 065
  9. VERAPAMIL [Concomitant]
     Active Substance: VERAPAMIL HYDROCHLORIDE
     Dosage: UNK, VERAPAMIL WAS HALVED
     Route: 065
  10. VERAPAMIL [Concomitant]
     Active Substance: VERAPAMIL HYDROCHLORIDE
     Dosage: 480 MG, BID
     Route: 065
  11. LASMIDITAN [Concomitant]
     Active Substance: LASMIDITAN
     Indication: Cluster headache
     Dosage: UNK
     Route: 065
  12. LASMIDITAN [Concomitant]
     Active Substance: LASMIDITAN
     Indication: Off label use
  13. LASMIDITAN [Concomitant]
     Active Substance: LASMIDITAN
     Indication: Prophylaxis
  14. OXYGEN [Concomitant]
     Active Substance: OXYGEN
     Indication: Cluster headache
     Dosage: UNK
     Route: 065

REACTIONS (4)
  - Myocardial infarction [Unknown]
  - Obsessive-compulsive symptom [Unknown]
  - Irritability [Unknown]
  - Incorrect product administration duration [Unknown]
